FAERS Safety Report 7504891-7 (Version None)
Quarter: 2011Q2

REPORT INFORMATION
  Report Type: 
  Country: None (occurrence: None)
  Receive Date: 20110526
  Receipt Date: 20110518
  Transmission Date: 20111010
  Serious: Yes (Hospitalization)
  Sender: FDA-Public Use
  Company Number: US-BIOGENIDEC-2011BI016804

PATIENT
  Age: 60 Year
  Sex: Female

DRUGS (4)
  1. LASIX [Concomitant]
  2. SPIRONOLACTONE [Concomitant]
  3. POTASSIUM CHLORIDE [Concomitant]
  4. TYSABRI [Suspect]
     Indication: MULTIPLE SCLEROSIS
     Route: 042
     Dates: start: 20090223

REACTIONS (5)
  - THROMBOSIS [None]
  - COGNITIVE DISORDER [None]
  - BURNING SENSATION [None]
  - PULMONARY THROMBOSIS [None]
  - MULTIPLE SCLEROSIS [None]
